FAERS Safety Report 9125792 (Version 2)
Quarter: 2013Q2

REPORT INFORMATION
  Report Type: Spontaneous
  Country: US (occurrence: US)
  Receive Date: 20130227
  Receipt Date: 20130510
  Transmission Date: 20140414
  Serious: No
  Sender: FDA-Public Use
  Company Number: US-PFIZER INC-2013068541

PATIENT
  Age: 77 Year
  Sex: Female

DRUGS (9)
  1. ZITHROMAX [Suspect]
     Dosage: UNK
  2. ERYTHROMYCIN [Suspect]
     Dosage: UNK
  3. FLAGYL [Suspect]
     Dosage: UNK
  4. NITROGLYCERIN [Suspect]
     Dosage: UNK
  5. TOPROL XL [Suspect]
     Dosage: UNK
  6. MYSTECLINE [Suspect]
     Dosage: UNK
  7. FLEXIN [Suspect]
     Dosage: UNK
  8. BACTRIM [Suspect]
     Dosage: UNK
  9. DISALCID [Suspect]
     Dosage: UNK

REACTIONS (1)
  - Drug hypersensitivity [Unknown]
